FAERS Safety Report 18899650 (Version 4)
Quarter: 2022Q1

REPORT INFORMATION
  Report Type: Report from Study
  Country: MX (occurrence: MX)
  Receive Date: 20210216
  Receipt Date: 20220316
  Transmission Date: 20220423
  Serious: Yes (Other)
  Sender: FDA-Public Use
  Company Number: NVSC2021MX033643

PATIENT
  Age: 61 Year
  Sex: Female
  Weight: 78 kg

DRUGS (9)
  1. EXFORGE [Suspect]
     Active Substance: AMLODIPINE BESYLATE\VALSARTAN
     Indication: Blood pressure increased
     Dosage: 1 DF, QD
     Route: 048
     Dates: start: 202012
  2. EXFORGE [Suspect]
     Active Substance: AMLODIPINE BESYLATE\VALSARTAN
     Indication: Blood pressure measurement
     Dosage: 1 DF, QD (03 MONTH AGO)
     Route: 048
     Dates: end: 202101
  3. EXFORGE [Suspect]
     Active Substance: AMLODIPINE BESYLATE\VALSARTAN
     Dosage: 0.5 DF, QD
     Route: 048
     Dates: start: 202101
  4. EXFORGE [Suspect]
     Active Substance: AMLODIPINE BESYLATE\VALSARTAN
     Dosage: 1 DOSAGE FORM, QD
     Route: 048
     Dates: start: 202010, end: 202101
  5. LANOXIN [Concomitant]
     Active Substance: DIGOXIN
     Indication: Product used for unknown indication
     Dosage: 0.5 DF, QD
     Route: 048
     Dates: start: 202010
  6. MICCIL [Concomitant]
     Indication: Fluid retention
     Dosage: 1 DF, QD
     Route: 048
     Dates: start: 202011
  7. SIG [Concomitant]
     Indication: Product used for unknown indication
     Dosage: 1 DF, QD
     Route: 048
     Dates: start: 202011
  8. CORDARONE [Concomitant]
     Active Substance: AMIODARONE HYDROCHLORIDE
     Indication: Heart rate abnormal
     Dosage: 1 DF, QD
     Route: 048
     Dates: start: 202102
  9. SINTROM [Concomitant]
     Active Substance: ACENOCOUMAROL
     Indication: Anticoagulant therapy
     Dosage: 0.5 DF, QD
     Route: 048
     Dates: start: 202012

REACTIONS (5)
  - Diabetes mellitus [Recovering/Resolving]
  - Blood glucose increased [Not Recovered/Not Resolved]
  - Blood pressure increased [Recovered/Resolved]
  - Illness [Unknown]
  - Off label use [Unknown]

NARRATIVE: CASE EVENT DATE: 20201201
